FAERS Safety Report 5869202-1 (Version None)
Quarter: 2008Q3

REPORT INFORMATION
  Report Type: 
  Country: None (occurrence: None)
  Receive Date: 20080903
  Receipt Date: 20080822
  Transmission Date: 20090109
  Serious: Yes (Death)
  Sender: FDA-Public Use
  Company Number: FR-GENENTECH-230797

PATIENT
  Sex: Female
  Weight: 51 kg

DRUGS (23)
  1. RITUXIMAB [Suspect]
     Indication: CHRONIC LYMPHOCYTIC LEUKAEMIA
     Dosage: 780 MG/M2, UNK
     Route: 042
     Dates: start: 20051121
  2. FLUDARABINE PHOSPHATE [Suspect]
     Indication: CHRONIC LYMPHOCYTIC LEUKAEMIA
     Dosage: 30 MG/M2, UNK
     Route: 042
     Dates: start: 20051122
  3. CYCLOPHOSPHAMIDE [Suspect]
     Indication: CHRONIC LYMPHOCYTIC LEUKAEMIA
     Dosage: 200 MG/M2, UNK
     Route: 042
     Dates: start: 20051122
  4. BACTRIM [Concomitant]
     Indication: DRUG USE FOR UNKNOWN INDICATION
     Dosage: 2 CAPFUL, 3/WEEK
     Dates: start: 20030602, end: 20060626
  5. BACTRIM [Concomitant]
     Dosage: 40 ML, UNK
     Dates: start: 20060718, end: 20060809
  6. BACTRIM [Concomitant]
     Dosage: 40 ML, UNK
     Dates: start: 20060817, end: 20060819
  7. CYMEVAN [Concomitant]
     Indication: DRUG USE FOR UNKNOWN INDICATION
     Dosage: 300 MG, UNK
     Dates: start: 20060602, end: 20060617
  8. VANCOMYCIN HYDROCHLORIDE [Concomitant]
     Indication: DRUG USE FOR UNKNOWN INDICATION
     Dosage: 2 G, UNK
     Dates: start: 20060604, end: 20060620
  9. VANCOMYCIN HYDROCHLORIDE [Concomitant]
     Dosage: 2 G, UNK
     Dates: start: 20060629, end: 20060706
  10. VANCOMYCIN HYDROCHLORIDE [Concomitant]
     Dosage: 1.5 G, UNK
     Dates: start: 20060712, end: 20060721
  11. TIENAM [Concomitant]
     Indication: DRUG USE FOR UNKNOWN INDICATION
     Dosage: 2 G, UNK
     Dates: start: 20060603, end: 20060613
  12. TIENAM [Concomitant]
     Dosage: 1.5 G, UNK
     Dates: start: 20060702, end: 20060816
  13. GENTAMYCIN SULFATE [Concomitant]
     Indication: DRUG USE FOR UNKNOWN INDICATION
     Dates: start: 20060603, end: 20060613
  14. CANCIDAS [Concomitant]
     Indication: DRUG USE FOR UNKNOWN INDICATION
     Dosage: 300 MG, UNK
     Dates: start: 20060611, end: 20060707
  15. NITROGLYCERIN [Concomitant]
     Indication: DRUG USE FOR UNKNOWN INDICATION
     Dosage: 6 G, UNK
     Dates: start: 20060615, end: 20060702
  16. TAVANIC [Concomitant]
     Indication: DRUG USE FOR UNKNOWN INDICATION
     Dosage: UNK, UNK
     Dates: start: 20060628, end: 20060701
  17. FLAGYL [Concomitant]
     Indication: DRUG USE FOR UNKNOWN INDICATION
     Dosage: 1 G, UNK
     Dates: start: 20060628, end: 20060707
  18. FOSCAVIR [Concomitant]
     Indication: DRUG USE FOR UNKNOWN INDICATION
     Dosage: 900 MG, UNK
     Dates: start: 20060629, end: 20060707
  19. AMIKLIN [Concomitant]
     Indication: DRUG USE FOR UNKNOWN INDICATION
     Dosage: 375 MG, UNK
     Dates: start: 20060703, end: 20060706
  20. AMBISOME [Concomitant]
     Indication: DRUG USE FOR UNKNOWN INDICATION
     Dosage: 250 MG, UNK
     Dates: start: 20060702, end: 20060712
  21. VFEND [Concomitant]
     Indication: DRUG USE FOR UNKNOWN INDICATION
     Dosage: 800 MG, UNK
     Dates: start: 20060712, end: 20060811
  22. ZOVIRAX [Concomitant]
     Indication: DRUG USE FOR UNKNOWN INDICATION
     Dosage: 750 MG, UNK
     Dates: start: 20060717, end: 20060729
  23. COLIMYCINE [Concomitant]
     Indication: DRUG USE FOR UNKNOWN INDICATION
     Dosage: 0.5 MIU, UNK
     Dates: start: 20060818, end: 20060818

REACTIONS (1)
  - SEPTIC SHOCK [None]
